FAERS Safety Report 4355929-X (Version None)
Quarter: 2004Q2

REPORT INFORMATION
  Report Type: 
  Country: None (occurrence: None)
  Receive Date: 20040507
  Receipt Date: 20040430
  Transmission Date: 20050107
  Serious: Yes (Death)
  Sender: FDA-Public Use
  Company Number: 04-04-0623

PATIENT
  Age: 43 Year
  Sex: Female

DRUGS (1)
  1. CLOZAPINE [Suspect]
     Indication: SCHIZOPHRENIA, PARANOID TYPE
     Dosage: 175-600MG QD ORAL
     Route: 048
     Dates: start: 19980801, end: 20040401

REACTIONS (1)
  - ABDOMINAL SEPSIS [None]
